FAERS Safety Report 5120281-9 (Version None)
Quarter: 2006Q4

REPORT INFORMATION
  Report Type: 
  Country: None (occurrence: None)
  Receive Date: 20061004
  Receipt Date: 20060309
  Transmission Date: 20070319
  Serious: Yes (Other)
  Sender: FDA-Public Use
  Company Number: PHHO2006US04162

PATIENT
  Age: 27 Year
  Sex: Female
  Weight: 95 kg

DRUGS (2)
  1. ORTHO EVRA [Concomitant]
  2. HTF919 VS PLACEBO [Suspect]
     Indication: DYSPEPSIA
     Dosage: 6 MG, BID
     Route: 048
     Dates: start: 20060224, end: 20060306

REACTIONS (4)
  - ABDOMINAL PAIN [None]
  - BACK PAIN [None]
  - HYPOAESTHESIA [None]
  - PAIN IN EXTREMITY [None]
